FAERS Safety Report 22915662 (Version 4)
Quarter: 2023Q4

REPORT INFORMATION
  Report Type: Report from Study
  Country: US (occurrence: US)
  Receive Date: 20230907
  Receipt Date: 20231211
  Transmission Date: 20240110
  Serious: Yes (Other)
  Sender: FDA-Public Use
  Company Number: US-INSMED, INC.-2023-03162-US

PATIENT
  Sex: Male

DRUGS (2)
  1. ARIKAYCE [Suspect]
     Active Substance: AMIKACIN
     Indication: Mycobacterium avium complex infection
     Dosage: 590 MILLIGRAM, QD
     Route: 055
     Dates: start: 20230815, end: 202309
  2. ARIKAYCE [Suspect]
     Active Substance: AMIKACIN
     Indication: Mycobacterium abscessus infection

REACTIONS (12)
  - Syncope [Unknown]
  - Fall [Unknown]
  - Injury [Unknown]
  - Sputum abnormal [Not Recovered/Not Resolved]
  - Renal function test abnormal [Unknown]
  - Hypotension [Not Recovered/Not Resolved]
  - Sputum increased [Recovered/Resolved]
  - Dysgeusia [Not Recovered/Not Resolved]
  - Cough [Recovered/Resolved]
  - Dizziness [Not Recovered/Not Resolved]
  - Adverse drug reaction [Unknown]
  - Therapy interrupted [Unknown]

NARRATIVE: CASE EVENT DATE: 20230101
